FAERS Safety Report 23086005 (Version 1)
Quarter: 2023Q4

REPORT INFORMATION
  Report Type: Spontaneous
  Country: US (occurrence: US)
  Receive Date: 20231019
  Receipt Date: 20231019
  Transmission Date: 20240109
  Serious: Yes (Hospitalization)
  Sender: FDA-Public Use
  Company Number: US-PFIZER INC-202300331488

PATIENT
  Age: 59 Year
  Sex: Male
  Weight: 81.633 kg

DRUGS (9)
  1. LEVETIRACETAM [Interacting]
     Active Substance: LEVETIRACETAM
     Dosage: 500 MG
  2. DILANTIN [Interacting]
     Active Substance: PHENYTOIN
     Indication: Epilepsy
     Dosage: UNK, 2X/DAY (3 PILLS IN THE MORNING, THREE ONES AT NIGHT)
  3. ATORVASTATIN [Interacting]
     Active Substance: ATORVASTATIN
     Dosage: UNK
  4. AMLODIPINE [Interacting]
     Active Substance: AMLODIPINE BESYLATE
     Dosage: UNK
  5. PHENYTOIN SODIUM [Interacting]
     Active Substance: PHENYTOIN SODIUM
     Dosage: UNK
  6. HALOPERIDOL [Interacting]
     Active Substance: HALOPERIDOL
     Dosage: 10 MG
  7. BENZTROPINE [Interacting]
     Active Substance: BENZTROPINE
     Dosage: 10 MG
     Dates: start: 20230531
  8. FLUOXETINE [Interacting]
     Active Substance: FLUOXETINE HYDROCHLORIDE
     Dosage: 20 MG
  9. HYDROCHLOROTHIAZIDE [Interacting]
     Active Substance: HYDROCHLOROTHIAZIDE
     Dosage: UNK

REACTIONS (7)
  - Drug interaction [Unknown]
  - Swollen tongue [Unknown]
  - Tremor [Unknown]
  - Weight decreased [Unknown]
  - Tongue disorder [Unknown]
  - Malaise [Unknown]
  - Somnolence [Unknown]
